FAERS Safety Report 9686048 (Version 1)
Quarter: 2013Q4

REPORT INFORMATION
  Report Type: Spontaneous
  Country: US (occurrence: US)
  Receive Date: 20131113
  Receipt Date: 20131113
  Transmission Date: 20140711
  Serious: No
  Sender: FDA-Public Use
  Company Number: US-ALLERGAN-1301109US

PATIENT
  Age: 81 Year
  Sex: Female

DRUGS (9)
  1. COMBIGAN[R] [Suspect]
     Indication: GLAUCOMA
     Dosage: 1 GTT, BID
     Route: 047
     Dates: start: 2012, end: 2012
  2. COMBIGAN[R] [Suspect]
     Dosage: 1 GTT, BID
     Route: 047
     Dates: start: 2012, end: 2012
  3. LOSARTAN [Concomitant]
     Indication: HYPERTENSION
     Dosage: 100 MG, QD
     Route: 048
  4. IDRATAPINE [Concomitant]
     Indication: HYPERTENSION
     Dosage: 2.5 MG, QAM
     Route: 048
  5. IDRATAPINE [Concomitant]
     Dosage: 5 MG, QPM
     Route: 048
  6. SANDOSTATIN                        /00821001/ [Concomitant]
     Indication: HEPATIC CANCER
     Dosage: UNK UNK, Q MONTH
     Route: 030
  7. COSOPT                             /01419801/ [Concomitant]
     Dosage: 1 GTT, QD
     Route: 047
  8. IOPIDINE                           /00948501/ [Concomitant]
     Indication: PRODUCT USED FOR UNKNOWN INDICATION
     Dosage: 2 GTT, QD
     Route: 047
  9. LATANOPROST [Concomitant]
     Indication: GLAUCOMA

REACTIONS (6)
  - Inappropriate schedule of drug administration [Unknown]
  - Muscular weakness [Recovered/Resolved]
  - Fatigue [Recovered/Resolved]
  - Abdominal pain upper [Recovered/Resolved]
  - Thirst [Recovered/Resolved]
  - Ocular hyperaemia [Recovered/Resolved]
